FAERS Safety Report 21568645 (Version 1)
Quarter: 2022Q4

REPORT INFORMATION
  Report Type: Report from Study
  Country: AU (occurrence: AU)
  Receive Date: 20221108
  Receipt Date: 20221108
  Transmission Date: 20230113
  Serious: Yes (Other)
  Sender: FDA-Public Use
  Company Number: AU-002147023-NVSC2022AU248419

PATIENT

DRUGS (3)
  1. RUXOLITINIB [Interacting]
     Active Substance: RUXOLITINIB
     Indication: Chronic graft versus host disease
     Dosage: 10 MG, BID
     Route: 048
     Dates: start: 20220613
  2. RUXOLITINIB [Interacting]
     Active Substance: RUXOLITINIB
     Dosage: 5 MG, BID
     Route: 048
  3. FLUCONAZOLE [Suspect]
     Active Substance: FLUCONAZOLE
     Indication: Oesophageal candidiasis
     Dosage: UNK
     Route: 065

REACTIONS (2)
  - Drug interaction [Unknown]
  - Oesophageal candidiasis [Unknown]
